FAERS Safety Report 4984474-3 (Version None)
Quarter: 2006Q2

REPORT INFORMATION
  Report Type: 
  Country: None (occurrence: None)
  Receive Date: 20060427
  Receipt Date: 20060330
  Transmission Date: 20061013
  Serious: Yes (Hospitalization, Other)
  Sender: FDA-Public Use
  Company Number: UG-GLAXOSMITHKLINE-B0420972A

PATIENT
  Age: 30 Year
  Sex: Female
  Weight: 48.3 kg

DRUGS (4)
  1. LAMIVUDINE [Suspect]
     Indication: HIV INFECTION
     Dosage: 150MG TWICE PER DAY
     Route: 048
     Dates: start: 20060316
  2. EFAVIRENZ [Suspect]
     Indication: HIV INFECTION
     Dosage: 600MG PER DAY
     Route: 048
     Dates: start: 20060316
  3. STAVUDINE [Suspect]
     Indication: HIV INFECTION
     Dosage: 40MG TWICE PER DAY
     Route: 048
     Dates: start: 20060316
  4. SEPTRIN [Concomitant]
     Dates: start: 20060202

REACTIONS (16)
  - ANOREXIA [None]
  - ARTHRALGIA [None]
  - ASTHENIA [None]
  - COUGH [None]
  - DEHYDRATION [None]
  - DIARRHOEA [None]
  - HEADACHE [None]
  - HEPATOSPLENOMEGALY [None]
  - MALAISE [None]
  - MYALGIA [None]
  - PALLOR [None]
  - PYREXIA [None]
  - SINUS HEADACHE [None]
  - SINUSITIS [None]
  - SWELLING FACE [None]
  - TACHYCARDIA [None]
